FAERS Safety Report 24685667 (Version 1)
Quarter: 2024Q4

REPORT INFORMATION
  Report Type: Report from Study
  Country: US (occurrence: US)
  Receive Date: 20241202
  Receipt Date: 20241202
  Transmission Date: 20250115
  Serious: Yes (Other)
  Sender: TEVA
  Company Number: US-TEVA-VS-3270061

PATIENT
  Age: 26 Year
  Sex: Male

DRUGS (1)
  1. CLARAVIS [Suspect]
     Active Substance: ISOTRETINOIN
     Indication: Product used for unknown indication
     Dosage: TEVA
     Route: 065
     Dates: end: 2024

REACTIONS (4)
  - Depression [Unknown]
  - Irritability [Unknown]
  - Chapped lips [Unknown]
  - Back pain [Unknown]

NARRATIVE: CASE EVENT DATE: 20240101
